FAERS Safety Report 6813545-1 (Version None)
Quarter: 2010Q3

REPORT INFORMATION
  Report Type: 
  Country: None (occurrence: None)
  Receive Date: 20100701
  Receipt Date: 20100622
  Transmission Date: 20110219
  Serious: Yes (Other)
  Sender: FDA-Public Use
  Company Number: US-TEVA-235343USA

PATIENT
  Sex: Female

DRUGS (1)
  1. COPAXONE [Suspect]
     Indication: MULTIPLE SCLEROSIS
     Route: 058

REACTIONS (5)
  - ANAPHYLACTIC SHOCK [None]
  - DYSPNOEA [None]
  - RASH [None]
  - THROAT TIGHTNESS [None]
  - URTICARIA [None]
